FAERS Safety Report 15333844 (Version 1)
Quarter: 2018Q3

REPORT INFORMATION
  Report Type: Spontaneous
  Country: US (occurrence: US)
  Receive Date: 20180830
  Receipt Date: 20180830
  Transmission Date: 20181010
  Serious: No
  Sender: FDA-Public Use
  Company Number: US-JNJFOC-20180820930

PATIENT
  Sex: Male

DRUGS (1)
  1. RISPERDAL CONSTA [Suspect]
     Active Substance: RISPERIDONE
     Indication: PRODUCT USED FOR UNKNOWN INDICATION
     Dosage: 5 YEARS PRIOR TO THE DATE OF THIS REPORT
     Route: 030

REACTIONS (4)
  - Injection site pain [Recovered/Resolved]
  - Injection site reaction [Unknown]
  - Hand fracture [Unknown]
  - Drug dose omission [Unknown]
